FAERS Safety Report 7887837 (Version 4)
Quarter: 2013Q1

REPORT INFORMATION
  Report Type: Spontaneous
  Country: US (occurrence: US)
  Receive Date: 20110406
  Receipt Date: 20130116
  Transmission Date: 20140127
  Serious: Yes (Hospitalization)
  Sender: FDA-Public Use
  Company Number: US-BAYER-2011-029391

PATIENT
  Age: 47 Year
  Sex: Female
  Weight: 79.32 kg

DRUGS (3)
  1. YASMIN [Suspect]
     Indication: PREMENSTRUAL SYNDROME
     Dosage: UNK
     Dates: start: 20070308, end: 20070429
  2. YAZ [Suspect]
     Indication: VAGINAL HAEMORRHAGE
     Dosage: UNK
     Dates: start: 200611, end: 20070501
  3. LO/OVRAL [Concomitant]

REACTIONS (7)
  - Pulmonary embolism [None]
  - Deep vein thrombosis [None]
  - Local swelling [None]
  - Pain in extremity [None]
  - Emotional distress [None]
  - General physical health deterioration [None]
  - Anxiety [None]
